FAERS Safety Report 6419001-7 (Version None)
Quarter: 2009Q4

REPORT INFORMATION
  Report Type: 
  Country: None (occurrence: None)
  Receive Date: 20091026
  Receipt Date: 20091014
  Transmission Date: 20100525
  Serious: Yes (Other)
  Sender: FDA-Public Use
  Company Number: 2009-03197

PATIENT
  Age: 50 Year
  Sex: Male

DRUGS (3)
  1. VELCADE [Suspect]
     Indication: MULTIPLE MYELOMA
  2. DOXIL [Suspect]
     Indication: MULTIPLE MYELOMA
  3. ZOMETA [Concomitant]

REACTIONS (4)
  - BURNING SENSATION [None]
  - EYE SWELLING [None]
  - EYELID OEDEMA [None]
  - SKIN CHAPPED [None]
